FAERS Safety Report 23004261 (Version 2)
Quarter: 2023Q4

REPORT INFORMATION
  Report Type: Spontaneous
  Country: US (occurrence: US)
  Receive Date: 20230928
  Receipt Date: 20231113
  Transmission Date: 20240110
  Serious: Yes (Other)
  Sender: FDA-Public Use
  Company Number: US-ORGANON-O2309USA003084

PATIENT
  Age: 38 Year
  Sex: Female
  Weight: 68.934 kg

DRUGS (2)
  1. NEXPLANON [Suspect]
     Active Substance: ETONOGESTREL
     Indication: Contraception
     Dosage: 1 IMPLANT OF 68 MG IN THE LEFT UPPER ARM
     Route: 059
     Dates: start: 20230818, end: 202309
  2. NEXPLANON [Suspect]
     Active Substance: ETONOGESTREL
     Dosage: 1 IMPLANT
     Route: 059
     Dates: start: 20230922

REACTIONS (3)
  - Device expulsion [Recovered/Resolved]
  - Implant site infection [Recovered/Resolved]
  - Implant site cellulitis [Recovered/Resolved]

NARRATIVE: CASE EVENT DATE: 20230906
